FAERS Safety Report 9645886 (Version 1)
Quarter: 2013Q4

REPORT INFORMATION
  Report Type: Spontaneous
  Country: US (occurrence: None)
  Receive Date: 20131024
  Receipt Date: 20131024
  Transmission Date: 20140711
  Serious: Yes (Other)
  Sender: FDA-Public Use
  Company Number: None

PATIENT
  Age: 46 Year
  Sex: Male

DRUGS (2)
  1. PEGINTRON [Suspect]
     Indication: HEPATITIS C
     Route: 058
     Dates: start: 20130110
  2. RIBASPHERE GENERIC [Suspect]
     Indication: HEPATITIS C
     Route: 048
     Dates: start: 20130110

REACTIONS (2)
  - Cellulitis [None]
  - Oedema [None]
